FAERS Safety Report 8601907-1 (Version None)
Quarter: 2012Q3

REPORT INFORMATION
  Report Type: 
  Country: None (occurrence: None)
  Receive Date: 20120817
  Receipt Date: 20120529
  Transmission Date: 20120928
  Serious: Yes (Death)
  Sender: FDA-Public Use
  Company Number: US-BRISTOL-MYERS SQUIBB COMPANY-16598260

PATIENT
  Age: 22 Year
  Sex: Male
  Weight: 83 kg

DRUGS (8)
  1. MEDROL [Concomitant]
  2. PHENERGAN HCL [Concomitant]
  3. ATIVAN [Concomitant]
  4. REGLAN [Concomitant]
  5. SPRYCEL [Suspect]
  6. ETOPOSIDE [Suspect]
  7. CARBOPLATIN [Suspect]
  8. AVASTIN [Suspect]

REACTIONS (1)
  - NEOPLASM MALIGNANT [None]
